FAERS Safety Report 8881288 (Version 1)
Quarter: 2012Q4

REPORT INFORMATION
  Report Type: 
  Country: US (occurrence: US)
  Receive Date: 20121031
  Receipt Date: 20121031
  Transmission Date: 20130627
  Serious: Yes (Death)
  Sender: FDA-Public Use
  Company Number: US-ROXANE LABORATORIES, INC.-2012-RO-02229RO

PATIENT
  Age: 66 Year

DRUGS (4)
  1. AMLODIPINE [Suspect]
     Route: 048
  2. METHADONE [Suspect]
     Route: 048
  3. UNSPECIFIED INGREDIENT [Suspect]
     Route: 048
  4. UNKNOWN [Suspect]
     Route: 048

REACTIONS (1)
  - Completed suicide [Fatal]
